FAERS Safety Report 7262405 (Version 2)
Quarter: 2013Q1

REPORT INFORMATION
  Report Type: Spontaneous
  Country: US (occurrence: US)
  Receive Date: 20100129
  Receipt Date: 20130201
  Transmission Date: 20140127
  Serious: No
  Sender: FDA-Public Use
  Company Number: US-ABBOTT-09P-163-0597724-00

PATIENT
  Age: 55 Year
  Sex: Male

DRUGS (2)
  1. HUMIRA [Suspect]
     Indication: CROHN^S DISEASE
     Route: 058
     Dates: start: 20080705, end: 2010
  2. AZULFIDINE [Concomitant]
     Indication: CROHN^S DISEASE

REACTIONS (8)
  - Rash papular [Not Recovered/Not Resolved]
  - Drug ineffective [Not Recovered/Not Resolved]
  - Drug ineffective [Unknown]
  - Loss of employment [Unknown]
  - Type 2 diabetes mellitus [Unknown]
  - Psoriasis [Unknown]
  - Psoriatic arthropathy [Recovering/Resolving]
  - Sleep apnoea syndrome [Unknown]
